FAERS Safety Report 22045879 (Version 2)
Quarter: 2023Q1

REPORT INFORMATION
  Report Type: Spontaneous
  Country: JP (occurrence: None)
  Receive Date: 20230228
  Receipt Date: 20230306
  Transmission Date: 20230417
  Serious: Yes (Other)
  Sender: FDA-Public Use
  Company Number: 2023A047842

PATIENT
  Age: 76 Year
  Sex: Female

DRUGS (1)
  1. OSIMERTINIB [Suspect]
     Active Substance: OSIMERTINIB
     Indication: Non-small cell lung cancer
     Route: 048

REACTIONS (3)
  - Cardiomyopathy [Recovering/Resolving]
  - Cardiomegaly [Recovering/Resolving]
  - Ejection fraction decreased [Unknown]
